FAERS Safety Report 10250885 (Version 3)
Quarter: 2014Q3

REPORT INFORMATION
  Report Type: Report from Study
  Country: US (occurrence: US)
  Receive Date: 20140620
  Receipt Date: 20140706
  Transmission Date: 20150326
  Serious: Yes (Hospitalization)
  Sender: FDA-Public Use
  Company Number: US-BRISTOL-MYERS SQUIBB COMPANY-20650446

PATIENT
  Age: 79 Year
  Sex: Male
  Weight: 78.2 kg

DRUGS (22)
  1. CLOBETASOL [Concomitant]
     Active Substance: CLOBETASOL
     Dosage: 1UNIT
     Dates: start: 20050512
  2. SELENIUM [Concomitant]
     Active Substance: SELENIUM
     Dates: start: 20050512
  3. METHYLPREDNISOLONE [Concomitant]
     Active Substance: METHYLPREDNISOLONE
     Dates: start: 20140207
  4. BETACAROTENE [Concomitant]
     Active Substance: .BETA.-CAROTENE
     Dates: start: 20050512
  5. PRAVASTATIN SODIUM. [Concomitant]
     Active Substance: PRAVASTATIN SODIUM
     Dates: start: 20050512
  6. FUROSEMIDE. [Concomitant]
     Active Substance: FUROSEMIDE
     Dates: start: 20140122
  7. DEXAMETHASONE. [Concomitant]
     Active Substance: DEXAMETHASONE
     Dates: start: 20140214
  8. VANCOMYCIN [Concomitant]
     Active Substance: VANCOMYCIN
  9. PLACEBO [Suspect]
     Active Substance: UNSPECIFIED INGREDIENT
     Indication: METASTATIC MALIGNANT MELANOMA
     Dosage: IV: 06MAR14 TO 06MAR14
     Route: 042
     Dates: start: 20131216
  10. ASPIRIN. [Concomitant]
     Active Substance: ASPIRIN
     Dates: start: 20050512
  11. ATARAX [Concomitant]
     Active Substance: HYDROXYZINE\HYDROXYZINE HYDROCHLORIDE
     Dates: start: 20050512
  12. VITAMIN E [Concomitant]
     Active Substance: .ALPHA.-TOCOPHEROL
     Dates: start: 20050512
  13. BLINDED: NIVOLUMAB [Suspect]
     Active Substance: NIVOLUMAB
     Indication: METASTATIC MALIGNANT MELANOMA
     Dosage: IV: 06MAR14 TO 06MAR14
     Route: 042
     Dates: start: 20131216
  14. PLAVIX [Concomitant]
     Active Substance: CLOPIDOGREL BISULFATE
     Dates: start: 20050512
  15. LUTEIN [Concomitant]
     Active Substance: LUTEIN
     Dates: start: 20050512
  16. VITAMIN C [Concomitant]
     Active Substance: ASCORBIC ACID
     Dates: start: 20050512
  17. MULTIVITAMIN [Concomitant]
     Active Substance: VITAMINS
     Dates: start: 20050512
  18. PIPERACILLIN AND TAZOBACTAM [Concomitant]
     Active Substance: PIPERACILLIN SODIUM\TAZOBACTAM SODIUM
  19. IPILIMUMAB [Suspect]
     Active Substance: IPILIMUMAB
     Indication: METASTATIC MALIGNANT MELANOMA
     Dosage: IV: 06MAR14 TO 06MAR14
     Route: 042
     Dates: start: 20131216
  20. BENADRYL [Concomitant]
     Active Substance: DIPHENHYDRAMINE HYDROCHLORIDE
  21. ZINC [Concomitant]
     Active Substance: ZINC\ZINC CHLORIDE
     Dates: start: 20050512
  22. DILTIAZEM HCL [Concomitant]
     Active Substance: DILTIAZEM HYDROCHLORIDE
     Dates: start: 20050512

REACTIONS (2)
  - Pneumonia [Recovered/Resolved]
  - Pneumonitis [Recovered/Resolved]

NARRATIVE: CASE EVENT DATE: 20140414
